FAERS Safety Report 7557912-X (Version None)
Quarter: 2011Q2

REPORT INFORMATION
  Report Type: 
  Country: None (occurrence: None)
  Receive Date: 20110620
  Receipt Date: 20110511
  Transmission Date: 20111010
  Serious: Yes (Life-Threatening, Other)
  Sender: FDA-Public Use
  Company Number: A0927761A

PATIENT
  Age: 35 Year
  Sex: Female
  Weight: 96.2 kg

DRUGS (1)
  1. FLOLAN [Suspect]
     Indication: PULMONARY ARTERIAL HYPERTENSION
     Route: 042
     Dates: start: 20100512

REACTIONS (9)
  - THERAPY CESSATION [None]
  - MALAISE [None]
  - DEVICE INFUSION ISSUE [None]
  - ASTHENIA [None]
  - LETHARGY [None]
  - NAUSEA [None]
  - DRUG ADMINISTRATION ERROR [None]
  - DYSPNOEA [None]
  - DIZZINESS [None]
